FAERS Safety Report 7338687-6 (Version None)
Quarter: 2011Q1

REPORT INFORMATION
  Report Type: 
  Country: None (occurrence: None)
  Receive Date: 20110308
  Receipt Date: 20101124
  Transmission Date: 20110831
  Serious: Yes (Hospitalization)
  Sender: FDA-Public Use
  Company Number: A0897818A

PATIENT
  Age: 72 Year
  Sex: Male
  Weight: 76.4 kg

DRUGS (2)
  1. INSULIN [Concomitant]
  2. AVANDIA [Suspect]
     Route: 048
     Dates: start: 20030731, end: 20070731

REACTIONS (4)
  - CARDIAC FAILURE CONGESTIVE [None]
  - ATRIAL FIBRILLATION [None]
  - TRANSIENT ISCHAEMIC ATTACK [None]
  - CEREBROVASCULAR ACCIDENT [None]
